FAERS Safety Report 6912476-6 (Version None)
Quarter: 2010Q3

REPORT INFORMATION
  Report Type: 
  Country: None (occurrence: None)
  Receive Date: 20100806
  Receipt Date: 20080512
  Transmission Date: 20110219
  Serious: No
  Sender: FDA-Public Use
  Company Number: US-PFIZER INC-2008027731

PATIENT
  Sex: Female
  Weight: 68.04 kg

DRUGS (5)
  1. NAVANE [Suspect]
     Indication: BIPOLAR I DISORDER
     Route: 048
     Dates: start: 20080215
  2. PREVACID [Concomitant]
  3. LAMICTAL [Concomitant]
  4. TOFRANIL [Concomitant]
  5. AMBIEN [Concomitant]

REACTIONS (3)
  - ERUCTATION [None]
  - FLATULENCE [None]
  - MIDDLE INSOMNIA [None]
